FAERS Safety Report 5533830-3 (Version None)
Quarter: 2007Q4

REPORT INFORMATION
  Report Type: 
  Country: None (occurrence: None)
  Receive Date: 20071129
  Receipt Date: 20071114
  Transmission Date: 20080405
  Serious: Yes (Other)
  Sender: FDA-Public Use
  Company Number: 164174ISR

PATIENT
  Sex: Female

DRUGS (2)
  1. CISPLATIN [Suspect]
     Indication: OVARIAN CANCER
  2. ETOPOSIDE [Concomitant]

REACTIONS (3)
  - ALBUMINURIA [None]
  - FLUID RETENTION [None]
  - OEDEMA [None]
